FAERS Safety Report 23546178 (Version 3)
Quarter: 2024Q2

REPORT INFORMATION
  Report Type: Spontaneous
  Country: CL (occurrence: CL)
  Receive Date: 20240220
  Receipt Date: 20240419
  Transmission Date: 20240717
  Serious: Yes (Hospitalization)
  Sender: FDA-Public Use
  Company Number: CL-SA-SAC20240214000915

PATIENT

DRUGS (1)
  1. LARONIDASE [Suspect]
     Active Substance: LARONIDASE
     Indication: Mucopolysaccharidosis I
     Dosage: 4 DF, QW
     Route: 042
     Dates: start: 20210505

REACTIONS (1)
  - Catheter site infection [Recovered/Resolved]
